FAERS Safety Report 8144611-9 (Version None)
Quarter: 2012Q1

REPORT INFORMATION
  Report Type: 
  Country: None (occurrence: None)
  Receive Date: 20120217
  Receipt Date: 20120214
  Transmission Date: 20120608
  Serious: Yes (Other)
  Sender: FDA-Public Use
  Company Number: US-PFIZER INC-2012040774

PATIENT
  Sex: Female
  Weight: 80 kg

DRUGS (12)
  1. PRAVASTATIN [Concomitant]
     Indication: BLOOD CHOLESTEROL INCREASED
     Dosage: 40 MG, DAILY
  2. IRON [Concomitant]
     Indication: ANAEMIA
     Dosage: UNK
  3. NEURONTIN [Suspect]
     Indication: NEURALGIA
     Dosage: 300MG IN MORNING AND 600MG IN EVENING
     Route: 048
     Dates: start: 20080101
  4. CARBIDOPA + LEVODOPA [Concomitant]
     Indication: PARKINSONIAN GAIT
     Dosage: 100MG DAILY
  5. IPRATROPIUM BROMIDE AND ALBUTEROL SULFATE [Concomitant]
     Dosage: UNK
  6. ENALAPRIL [Concomitant]
     Indication: HYPERTENSION
     Dosage: 5 MG, DAILY
  7. VITAMIN TAB [Concomitant]
     Dosage: UNK
  8. VIIBRYD [Concomitant]
     Indication: ANTIDEPRESSANT THERAPY
     Dosage: 40 MG, DAILY
  9. LYRICA [Suspect]
     Indication: NEURALGIA
     Dosage: 75 MG, 2X/DAY
     Route: 048
     Dates: start: 20110101
  10. BACLOFEN [Concomitant]
     Indication: MOVEMENT DISORDER
     Dosage: 10 MG, 3X/DAY
  11. CETIRIZINE HYDROCHLORIDE [Concomitant]
     Indication: HYPERSENSITIVITY
     Dosage: UNK
  12. OXYBUTYNIN [Concomitant]
     Indication: URINARY INCONTINENCE
     Dosage: 5 MG, 3X/DAY

REACTIONS (7)
  - FATIGUE [None]
  - DRUG EFFECT DECREASED [None]
  - OXYGEN SATURATION ABNORMAL [None]
  - PNEUMONIA [None]
  - TENDON INJURY [None]
  - SKELETAL INJURY [None]
  - FALL [None]
